FAERS Safety Report 13947383 (Version 1)
Quarter: 2017Q3

REPORT INFORMATION
  Report Type: Spontaneous
  Country: US (occurrence: US)
  Receive Date: 20170908
  Receipt Date: 20170908
  Transmission Date: 20171128
  Serious: No
  Sender: FDA-Public Use
  Company Number: US-ELI_LILLY_AND_COMPANY-US201709001901

PATIENT
  Age: 69 Year
  Sex: Male

DRUGS (2)
  1. HUMALOG [Suspect]
     Active Substance: INSULIN LISPRO
     Dosage: 40 U, EACH EVENING
     Route: 058
     Dates: start: 2016
  2. HUMALOG [Suspect]
     Active Substance: INSULIN LISPRO
     Indication: TYPE 1 DIABETES MELLITUS
     Dosage: 35 U, EACH MORNING
     Route: 058
     Dates: start: 2016

REACTIONS (1)
  - Injury associated with device [Recovering/Resolving]

NARRATIVE: CASE EVENT DATE: 20170905
